FAERS Safety Report 12406376 (Version 2)
Quarter: 2016Q2

REPORT INFORMATION
  Report Type: Spontaneous
  Country: US (occurrence: US)
  Receive Date: 20160526
  Receipt Date: 20160527
  Transmission Date: 20160815
  Serious: No
  Sender: FDA-Public Use
  Company Number: US-ROCHE-1764494

PATIENT
  Sex: Female

DRUGS (18)
  1. KRISTALOSE [Concomitant]
     Active Substance: LACTULOSE
  2. LEXAPRO [Concomitant]
     Active Substance: ESCITALOPRAM OXALATE
  3. LIPITOR [Concomitant]
     Active Substance: ATORVASTATIN CALCIUM
  4. ASPIRIN. [Concomitant]
     Active Substance: ASPIRIN
     Route: 048
  5. LOMOTIL (UNITED STATES) [Concomitant]
  6. PERCOCET [Concomitant]
     Active Substance: ACETAMINOPHEN\OXYCODONE HYDROCHLORIDE
  7. COUMADIN [Concomitant]
     Active Substance: WARFARIN SODIUM
     Route: 048
  8. METOPROLOL. [Concomitant]
     Active Substance: METOPROLOL
  9. PRILOSEC [Concomitant]
     Active Substance: OMEPRAZOLE MAGNESIUM
  10. DURAGESIC [Concomitant]
     Active Substance: FENTANYL
     Route: 061
  11. KLOR-CON [Concomitant]
     Active Substance: POTASSIUM CHLORIDE
     Route: 048
  12. SYNTHROID [Concomitant]
     Active Substance: LEVOTHYROXINE SODIUM
  13. ACTEMRA [Suspect]
     Active Substance: TOCILIZUMAB
     Indication: RHEUMATOID ARTHRITIS
     Route: 058
     Dates: start: 20141118
  14. MULTAQ [Concomitant]
     Active Substance: DRONEDARONE
  15. URSO (URSODEOXYCHOLIC ACID) [Concomitant]
  16. GABAPENTIN. [Concomitant]
     Active Substance: GABAPENTIN
     Route: 048
  17. LASIX [Concomitant]
     Active Substance: FUROSEMIDE
  18. LOPERAMIDE [Concomitant]
     Active Substance: LOPERAMIDE

REACTIONS (1)
  - Rheumatoid arthritis [Unknown]
